FAERS Safety Report 20082734 (Version 1)
Quarter: 2021Q4

REPORT INFORMATION
  Report Type: Spontaneous
  Country: CN (occurrence: CN)
  Receive Date: 20211117
  Receipt Date: 20211117
  Transmission Date: 20220303
  Serious: Yes (Hospitalization)
  Sender: FDA-Public Use
  Company Number: CN-PFIZER INC-202101539876

PATIENT
  Age: 53 Year
  Sex: Female
  Weight: 63 kg

DRUGS (2)
  1. CELECOXIB [Suspect]
     Active Substance: CELECOXIB
     Indication: Analgesic therapy
     Dosage: 0.2 G, 2X/DAY
     Route: 048
     Dates: start: 20211101, end: 20211103
  2. METHYLCOBALAMIN [Concomitant]
     Active Substance: METHYLCOBALAMIN
     Indication: Therapeutic procedure
     Dosage: 1.000 MG, 3X/DAY
     Route: 048
     Dates: start: 20211101, end: 20211104

REACTIONS (4)
  - Hypersensitivity [Recovering/Resolving]
  - Rash erythematous [Recovering/Resolving]
  - Pruritus [Recovering/Resolving]
  - Scratch [Recovering/Resolving]

NARRATIVE: CASE EVENT DATE: 20211104
